FAERS Safety Report 17070664 (Version 4)
Quarter: 2020Q4

REPORT INFORMATION
  Report Type: Spontaneous
  Country: US (occurrence: US)
  Receive Date: 20191125
  Receipt Date: 20201019
  Transmission Date: 20210113
  Serious: Yes (Hospitalization, Other)
  Sender: FDA-Public Use
  Company Number: US-PFIZER INC-2019503820

PATIENT
  Age: 45 Year
  Sex: Male
  Weight: 70.3 kg

DRUGS (1)
  1. PHENYTOIN SODIUM. [Suspect]
     Active Substance: PHENYTOIN SODIUM
     Indication: SEIZURE
     Dosage: 200 MG, 2X/DAY

REACTIONS (1)
  - Seizure [Not Recovered/Not Resolved]

NARRATIVE: CASE EVENT DATE: 2002
